FAERS Safety Report 7084269-3 (Version None)
Quarter: 2010Q4

REPORT INFORMATION
  Report Type: 
  Country: None (occurrence: None)
  Receive Date: 20101104
  Receipt Date: 20101028
  Transmission Date: 20110411
  Serious: Yes (Other)
  Sender: FDA-Public Use
  Company Number: US-PFIZER INC-2010119896

PATIENT
  Sex: Male
  Weight: 113.38 kg

DRUGS (13)
  1. VIAGRA [Suspect]
     Indication: ERECTILE DYSFUNCTION
     Dosage: 100 MG, AS NEEDED
     Route: 048
  2. VIAGRA [Interacting]
     Dosage: 50 MG, AS NEEDED
     Route: 048
     Dates: start: 20080101
  3. LISINOPRIL [Interacting]
     Dosage: 10 MG (2 IN THE MORNING AND 1 AT NIGHT)
  4. LEXAPRO [Interacting]
     Indication: DEPRESSION
     Dosage: 20 MG, DAILY
     Route: 048
     Dates: start: 20090101
  5. SIMVASTATIN [Concomitant]
     Indication: BLOOD CHOLESTEROL INCREASED
     Dosage: 40 MG, 1X/DAY (AT NIGHT)
  6. PLAVIX [Concomitant]
     Indication: ANTICOAGULANT THERAPY
     Dosage: 75 MG, 1X/DAY (1 IN THE MORNING)
  7. LORAZEPAM [Concomitant]
     Dosage: 1 OR 1.5 AS NEEDED
  8. RANIBIZUMAB [Concomitant]
     Dosage: UNK IN EACH EYE
  9. ASCORBIC ACID [Concomitant]
     Dosage: 500 MG, 1X/DAY (IN THE MORNING)
  10. VITAMIN D [Concomitant]
     Dosage: 1000 IU, 1X/DAY
  11. SELENIUM [Concomitant]
     Dosage: 200 MG, 1X/DAY (IN THE MORNING)
  12. MULTI-VITAMINS [Concomitant]
     Dosage: UNK
  13. MAGNESIUM [Concomitant]
     Dosage: UNK
     Dates: end: 20090101

REACTIONS (3)
  - DRUG INTERACTION [None]
  - HYPOTENSION [None]
  - SYNCOPE [None]
